FAERS Safety Report 9105401 (Version 1)
Quarter: 2013Q1

REPORT INFORMATION
  Report Type: Spontaneous
  Country: ES (occurrence: ES)
  Receive Date: 20130220
  Receipt Date: 20130220
  Transmission Date: 20140127
  Serious: Yes (Hospitalization)
  Sender: FDA-Public Use
  Company Number: ES-OTSUKA-EU-2013-10042

PATIENT
  Age: 70 Year
  Sex: Male

DRUGS (14)
  1. EKISTOL [Suspect]
     Indication: INTERMITTENT CLAUDICATION
     Dosage: 200 MG MILLIGRAM(S), DAILY DOSE
     Route: 048
     Dates: start: 20090727
  2. CLOPIDOGREL [Concomitant]
     Dosage: 75 MG MILLIGRAM(S), DAILY DOSE
     Dates: start: 20090415
  3. ALDOLEO [Concomitant]
     Dosage: UNK
  4. CARDURAN NEO [Concomitant]
     Dosage: 8 MG MILLIGRAM(S), DAILY DOSE
     Route: 048
  5. SIMVASTATIN [Concomitant]
     Dosage: UNK
  6. ACETYLSALICYLIC ACID [Concomitant]
     Dosage: 100 MG MILLIGRAM(S), DAILY DOSE
  7. LOSARTAN [Concomitant]
     Dosage: 100 MG MILLIGRAM(S), DAILY DOSE
  8. AMLODIPINE [Concomitant]
     Dosage: 5 MG MILLIGRAM(S), DAILY DOSE
  9. SIMVASTATIN [Concomitant]
     Dosage: 40 MG MILLIGRAM(S), DAILY DOSE
  10. BUDESONIDE [Concomitant]
     Dosage: UNK
  11. IPRATROPIUM [Concomitant]
     Dosage: UNK
  12. OMEPRAZOLE [Concomitant]
     Dosage: 20 MG MILLIGRAM(S), UNKNOWN
  13. ELORGAN [Concomitant]
     Dosage: 1.2 G GRAM(S), DAILY DOSE
  14. BISOPROLOL [Concomitant]
     Dosage: 2.5 MG MILLIGRAM(S), DAILY DOSE

REACTIONS (4)
  - Acute myocardial infarction [Recovered/Resolved]
  - Angina unstable [Recovered/Resolved]
  - Vascular graft [Unknown]
  - Epistaxis [Unknown]
